FAERS Safety Report 20906571 (Version 3)
Quarter: 2022Q3

REPORT INFORMATION
  Report Type: Spontaneous
  Country: AT (occurrence: AT)
  Receive Date: 20220602
  Receipt Date: 20220816
  Transmission Date: 20221027
  Serious: Yes (Other)
  Sender: FDA-Public Use
  Company Number: AT-ROCHE-3107990

PATIENT
  Age: 75 Year
  Sex: Male

DRUGS (7)
  1. MABTHERA [Suspect]
     Active Substance: RITUXIMAB
     Indication: Waldenstrom^s macroglobulinaemia
     Route: 058
  2. RITUXIMAB [Suspect]
     Active Substance: RITUXIMAB
     Indication: Waldenstrom^s macroglobulinaemia
     Dosage: FIRST LINE SYSTEMIC TREATMENT (R-BENDAMUSTINE), COMPLETE REMISSION
     Route: 042
     Dates: start: 201812, end: 201905
  3. RITUXIMAB [Suspect]
     Active Substance: RITUXIMAB
     Dosage: FOURTH LINE SYSTEMIC TREATMENT (RITUXIMAB + BORTEZOMIB + DEXAMETHASONE), PD AND OTHER: CLINICAL PROG
     Route: 042
     Dates: start: 20220519, end: 20220523
  4. VENETOCLAX [Concomitant]
     Active Substance: VENETOCLAX
     Dosage: THIRD LINE SYSTEMIC TREATMENT (VENETOCLAX), PD
     Dates: start: 202202, end: 202205
  5. BENDAMUSTINE [Concomitant]
     Active Substance: BENDAMUSTINE
     Dosage: FIRST LINE SYSTEMIC TREATMENT (R-BENDAMUSTINE), COMPLETE REMISSION
  6. IBRUTINIB [Concomitant]
     Active Substance: IBRUTINIB
     Dosage: SECOND LINE SYSTEMIC TREATMENT (IBRUTINIB), PD AND INTOLERABLE TOXICITY
     Dates: start: 202104, end: 202201
  7. BORTEZOMIB;DEXAMETHASONE [Concomitant]
     Dosage: FOURTH LINE SYSTEMIC TREATMENT (RITUXIMAB + BORTEZOMIB + DEXAMETHASONE), PD AND OTHER: CLINICAL PROG
     Dates: start: 20220519, end: 20220523

REACTIONS (3)
  - Blood lactate dehydrogenase increased [Unknown]
  - Waldenstrom^s macroglobulinaemia [Unknown]
  - Off label use [Unknown]

NARRATIVE: CASE EVENT DATE: 20220501
